FAERS Safety Report 17741310 (Version 2)
Quarter: 2020Q2

REPORT INFORMATION
  Report Type: Report from Study
  Country: BR (occurrence: BR)
  Receive Date: 20200504
  Receipt Date: 20200517
  Transmission Date: 20200714
  Serious: Yes (Hospitalization, Other)
  Sender: FDA-Public Use
  Company Number: NVSC2020BR118911

PATIENT
  Age: 32 Year
  Sex: Female
  Weight: 70 kg

DRUGS (4)
  1. COSENTYX [Suspect]
     Active Substance: SECUKINUMAB
     Indication: PSORIASIS
     Dosage: 300 MG, QMO (2 PENS OF EACH 150MG)
     Route: 058
     Dates: start: 20190702
  2. ATENOLOL. [Suspect]
     Active Substance: ATENOLOL
     Indication: SINUS TACHYCARDIA
     Dosage: 25 MG, QD
     Route: 048
     Dates: start: 201710
  3. COSENTYX [Suspect]
     Active Substance: SECUKINUMAB
     Dosage: 300 MG
     Route: 058
     Dates: start: 20200330
  4. CYCLOBENZAPRINE. [Concomitant]
     Active Substance: CYCLOBENZAPRINE
     Indication: INTERVERTEBRAL DISC PROTRUSION
     Dosage: 10 MG, QD
     Route: 048
     Dates: start: 2015

REACTIONS (10)
  - Rhinorrhoea [Recovered/Resolved]
  - Dyspnoea [Recovering/Resolving]
  - Asthma [Unknown]
  - Dyspnoea [Recovered/Resolved]
  - Oxygen saturation decreased [Not Recovered/Not Resolved]
  - Gait inability [Recovered/Resolved]
  - Pneumonia viral [Unknown]
  - Dyspnoea [Recovered/Resolved]
  - Malaise [Recovered/Resolved]
  - Nasopharyngitis [Recovered/Resolved]

NARRATIVE: CASE EVENT DATE: 202001
